FAERS Safety Report 19835253 (Version 1)
Quarter: 2021Q3

REPORT INFORMATION
  Report Type: Spontaneous
  Country: DE (occurrence: DE)
  Receive Date: 20210915
  Receipt Date: 20210915
  Transmission Date: 20211014
  Serious: Yes (Hospitalization)
  Sender: FDA-Public Use
  Company Number: DE-ACCORD-228170

PATIENT
  Age: 74 Year
  Sex: Female

DRUGS (7)
  1. CISPLATIN. [Suspect]
     Active Substance: CISPLATIN
     Indication: PRODUCT USED FOR UNKNOWN INDICATION
     Dosage: 27012021
  2. EFEROX [Concomitant]
     Active Substance: LEVOTHYROXINE SODIUM
     Dosage: 75 UG, 1?0?0?0
  3. VINORELBINE [Suspect]
     Active Substance: VINORELBINE TARTRATE
     Indication: PRODUCT USED FOR UNKNOWN INDICATION
     Dosage: LAST 27012021
  4. AMITRIPTYLINE [Concomitant]
     Active Substance: AMITRIPTYLINE
     Dosage: 0?0?1?0
  5. AMLODIPINE [Concomitant]
     Active Substance: AMLODIPINE BESYLATE
     Dosage: 5 MG, 0?1?0?0
  6. RAMIPRIL. [Concomitant]
     Active Substance: RAMIPRIL
     Dosage: 2.5 MG, 1?0?1?0
  7. FORMOTEROL [Concomitant]
     Active Substance: FORMOTEROL
     Dosage: 160/4.5 UG, 1?0?1?0
     Route: 055

REACTIONS (4)
  - Syncope [Unknown]
  - Asthenia [Unknown]
  - Decreased appetite [Unknown]
  - Renal impairment [Unknown]
